FAERS Safety Report 8578891-2 (Version None)
Quarter: 2012Q3

REPORT INFORMATION
  Report Type: 
  Country: None (occurrence: None)
  Receive Date: 20120808
  Receipt Date: 20120730
  Transmission Date: 20120928
  Serious: Yes (Hospitalization)
  Sender: FDA-Public Use
  Company Number: US-ASTRAZENECA-2012SE54087

PATIENT
  Age: 57 Year
  Sex: Female
  Weight: 113.4 kg

DRUGS (9)
  1. KLONOPIN [Concomitant]
  2. SEROQUEL [Suspect]
     Indication: BIPOLAR DISORDER
     Route: 048
     Dates: start: 20100101
  3. LITHIUM CARBONATE [Suspect]
  4. HYDROCODONE BITARTRATE [Concomitant]
  5. ZOLOFT [Concomitant]
  6. SIMVASTATIN [Concomitant]
  7. LAMICTAL [Concomitant]
  8. LEVOTHYROXINE SODIUM [Concomitant]
  9. MIRAPEX [Concomitant]

REACTIONS (7)
  - ANAPHYLACTIC REACTION [None]
  - DELIRIUM [None]
  - LOSS OF CONSCIOUSNESS [None]
  - DRUG DOSE OMISSION [None]
  - DRUG HYPERSENSITIVITY [None]
  - WEIGHT DECREASED [None]
  - ARTHROPATHY [None]
